FAERS Safety Report 5696746-8 (Version None)
Quarter: 2008Q2

REPORT INFORMATION
  Report Type: 
  Country: None (occurrence: None)
  Receive Date: 20080408
  Receipt Date: 20061023
  Transmission Date: 20081010
  Serious: No
  Sender: FDA-Public Use
  Company Number: US-BAYER-US-2006-032413

PATIENT
  Age: 42 Year
  Sex: Female

DRUGS (3)
  1. YASMIN [Suspect]
     Indication: MENORRHAGIA
     Route: 048
     Dates: end: 20060801
  2. YASMIN [Suspect]
     Route: 048
     Dates: start: 20061001
  3. SYNTHROID [Concomitant]
     Dates: start: 20010101

REACTIONS (6)
  - HEADACHE [None]
  - HOT FLUSH [None]
  - MENOMETRORRHAGIA [None]
  - MENOPAUSE [None]
  - MENSTRUATION DELAYED [None]
  - SINUSITIS [None]
